FAERS Safety Report 4571472-7 (Version None)
Quarter: 2005Q1

REPORT INFORMATION
  Report Type: 
  Country: None (occurrence: None)
  Receive Date: 20050118
  Receipt Date: 20031222
  Transmission Date: 20050727
  Serious: Yes (Hospitalization, Other)
  Sender: FDA-Public Use
  Company Number: HQ4288519SEP2002

PATIENT
  Age: 63 Year
  Sex: Female

DRUGS (1)
  1. PREMPHASE (CONJUGATED ESTROGENS/MEDROXYPROGESTERONE ACETATE, UNSPEC) [Suspect]
     Indication: MENOPAUSAL SYMPTOMS
     Dosage: ONE TABLET DAILY 0.625/5MG, ORAL
     Route: 048
     Dates: start: 19870101, end: 20010101

REACTIONS (1)
  - BREAST CANCER FEMALE [None]
